FAERS Safety Report 5376363-X (Version None)
Quarter: 2007Q3

REPORT INFORMATION
  Report Type: 
  Country: None (occurrence: None)
  Receive Date: 20070702
  Receipt Date: 20070621
  Transmission Date: 20080115
  Serious: Yes (Death, Hospitalization)
  Sender: FDA-Public Use
  Company Number: ES-PFIZER INC-2007040665

PATIENT
  Sex: Male

DRUGS (18)
  1. SU-011,248 [Suspect]
     Indication: NON-SMALL CELL LUNG CANCER
     Route: 048
     Dates: start: 20070512, end: 20070516
  2. CISPLATIN [Suspect]
     Indication: NON-SMALL CELL LUNG CANCER
     Route: 042
     Dates: start: 20070510, end: 20070510
  3. GEMCITABINE HCL [Suspect]
     Indication: NON-SMALL CELL LUNG CANCER
     Route: 042
     Dates: start: 20070510, end: 20070510
  4. DURAGESIC-100 [Concomitant]
     Route: 062
  5. METAMIZOLE [Concomitant]
     Route: 048
  6. OMEPRAZOLE [Concomitant]
     Route: 048
  7. FORTECORTIN [Concomitant]
     Route: 048
  8. DUPHALAC [Concomitant]
     Route: 048
  9. DICLOFENAC [Concomitant]
     Route: 048
  10. ACTIQ [Concomitant]
     Route: 048
  11. GABAPENTIN [Concomitant]
     Route: 048
  12. SALMETEROL [Concomitant]
  13. PULMICORT [Concomitant]
     Route: 055
  14. ATROVENT [Concomitant]
     Route: 055
  15. SEVREDOL [Concomitant]
  16. ENOXAPARIN SODIUM [Concomitant]
  17. METHOCLOPRAMIDE [Concomitant]
  18. PARACETAMOL [Concomitant]

REACTIONS (4)
  - DIARRHOEA [None]
  - INTESTINAL OBSTRUCTION [None]
  - NEUTROPENIA [None]
  - PNEUMONIA [None]
